FAERS Safety Report 25614335 (Version 1)
Quarter: 2025Q3

REPORT INFORMATION
  Report Type: Spontaneous
  Country: US (occurrence: US)
  Receive Date: 20250728
  Receipt Date: 20250728
  Transmission Date: 20251021
  Serious: Yes (Other)
  Sender: BRISTOL-MYERS SQUIBB COMPANY
  Company Number: US-BRISTOL-MYERS SQUIBB COMPANY-2025-105174

PATIENT
  Age: 78 Year
  Sex: Male
  Weight: 77.56 kg

DRUGS (1)
  1. REVLIMID [Suspect]
     Active Substance: LENALIDOMIDE
     Indication: Mantle cell lymphoma
     Dosage: DAILY FOR 21 DAYS AND 7 DAYS
     Route: 048

REACTIONS (2)
  - Pneumonia [Recovering/Resolving]
  - Conduction disorder [Recovering/Resolving]
